FAERS Safety Report 12612677 (Version 3)
Quarter: 2016Q3

REPORT INFORMATION
  Report Type: Spontaneous
  Country: DE (occurrence: DE)
  Receive Date: 20160801
  Receipt Date: 20160908
  Transmission Date: 20161109
  Serious: Yes (Hospitalization)
  Sender: FDA-Public Use
  Company Number: PHHY2016DE088481

PATIENT
  Sex: Female

DRUGS (3)
  1. PROPIVER [Concomitant]
     Indication: BLADDER DISORDER
     Dosage: 15 MG, QD
     Route: 065
     Dates: start: 2013
  2. BACLOFEN. [Concomitant]
     Active Substance: BACLOFEN
     Indication: MUSCLE SPASTICITY
     Dosage: 25 MG, TID
     Route: 065
     Dates: start: 2010
  3. GILENYA [Suspect]
     Active Substance: FINGOLIMOD HYDROCHLORIDE
     Indication: MULTIPLE SCLEROSIS
     Dosage: 0.5 MG, QOD
     Route: 065
     Dates: start: 20160523

REACTIONS (3)
  - Fatigue [Not Recovered/Not Resolved]
  - Prescribed underdose [Unknown]
  - Dyspnoea exertional [Recovering/Resolving]

NARRATIVE: CASE EVENT DATE: 20160523
